FAERS Safety Report 8520659-7 (Version None)
Quarter: 2012Q3

REPORT INFORMATION
  Report Type: 
  Country: None (occurrence: None)
  Receive Date: 20120719
  Receipt Date: 20120419
  Transmission Date: 20120928
  Serious: Yes (Life-Threatening)
  Sender: FDA-Public Use
  Company Number: TR-ASTRAZENECA-2012SE47045

PATIENT
  Age: 22 Year
  Sex: Male

DRUGS (3)
  1. MIDAZOLAM HCL [Concomitant]
     Indication: PREMEDICATION
     Route: 065
  2. SODIUM CHLORIDE [Concomitant]
     Indication: PREMEDICATION
     Route: 065
  3. MARCAINE [Suspect]
     Indication: ANAESTHESIA PROCEDURE
     Dosage: 3ML 15MG
     Route: 037

REACTIONS (1)
  - CARDIAC ARREST [None]
